FAERS Safety Report 12076568 (Version 2)
Quarter: 2016Q2

REPORT INFORMATION
  Report Type: Report from Study
  Country: DE (occurrence: DE)
  Receive Date: 20160215
  Receipt Date: 20160413
  Transmission Date: 20160815
  Serious: Yes (Other)
  Sender: FDA-Public Use
  Company Number: PHHY2016DE019308

PATIENT
  Age: 48 Year
  Sex: Female

DRUGS (1)
  1. GLIVEC [Suspect]
     Active Substance: IMATINIB MESYLATE
     Indication: CHRONIC MYELOID LEUKAEMIA
     Dosage: 400 MG, DAILY
     Route: 065
     Dates: start: 201504, end: 201511

REACTIONS (9)
  - Periorbital oedema [Unknown]
  - Circulatory collapse [Unknown]
  - Skin discolouration [Unknown]
  - Erythema [Unknown]
  - Pain in extremity [Unknown]
  - Myalgia [Unknown]
  - Nausea [Unknown]
  - Urticaria [Unknown]
  - Muscle spasms [Unknown]

NARRATIVE: CASE EVENT DATE: 2015
